FAERS Safety Report 11321609 (Version 2)
Quarter: 2015Q3

REPORT INFORMATION
  Report Type: Spontaneous
  Country: US (occurrence: US)
  Receive Date: 20150729
  Receipt Date: 20150805
  Transmission Date: 20151125
  Serious: No
  Sender: FDA-Public Use
  Company Number: US-PFIZER INC-2015252493

PATIENT
  Sex: Male

DRUGS (1)
  1. VIAGRA [Suspect]
     Active Substance: SILDENAFIL CITRATE
     Dosage: UNK, 1X/DAY
     Dates: start: 2015

REACTIONS (2)
  - Testicular swelling [Unknown]
  - Genital hyperaesthesia [Unknown]

NARRATIVE: CASE EVENT DATE: 2015
